FAERS Safety Report 9442941 (Version 2)
Quarter: 2013Q3

REPORT INFORMATION
  Report Type: Spontaneous
  Country: US (occurrence: US)
  Receive Date: 20130806
  Receipt Date: 20130823
  Transmission Date: 20140515
  Serious: Yes (Hospitalization)
  Sender: FDA-Public Use
  Company Number: US-BAYER-2013-094601

PATIENT
  Age: 36 Year
  Sex: Female

DRUGS (11)
  1. YASMIN [Suspect]
     Indication: ACNE
     Dosage: UNK
     Dates: start: 200808, end: 200902
  2. YAZ [Suspect]
     Indication: ACNE
     Dosage: UNK
     Dates: start: 200808, end: 200902
  3. LEVOTHYROXINE [Concomitant]
     Dosage: UNK
     Dates: start: 20090201
  4. PROMETHAZINE - CODEINE [CODEINE PHOSPHATE,PROMETHAZINE HYDROCHLORI [Concomitant]
     Dosage: UNK
     Dates: start: 20090201
  5. PROAIR HFA [Concomitant]
     Dosage: UNK
     Dates: start: 20090201
  6. DOXYCYCLINE [Concomitant]
     Dosage: UNK
     Dates: start: 20090202
  7. FLUCONAZOLE [Concomitant]
     Dosage: UNK
     Dates: start: 20090202
  8. PREDNISONE [Concomitant]
     Dosage: UNK
     Dates: start: 20090202
  9. FUROSEMIDE [Concomitant]
  10. ALBUTEROL [Concomitant]
  11. PHENERGAN [Concomitant]

REACTIONS (8)
  - Pulmonary embolism [None]
  - Injury [None]
  - Pain [None]
  - General physical health deterioration [None]
  - Anxiety [None]
  - Emotional distress [None]
  - Anhedonia [None]
  - Pain [None]
